FAERS Safety Report 25055261 (Version 2)
Quarter: 2025Q2

REPORT INFORMATION
  Report Type: Report from Study
  Country: CA (occurrence: CA)
  Receive Date: 20250308
  Receipt Date: 20250613
  Transmission Date: 20250716
  Serious: Yes (Hospitalization)
  Sender: ABBVIE
  Company Number: CA-ABBVIE-6168111

PATIENT
  Age: 85 Year
  Sex: Female
  Weight: 85 kg

DRUGS (1)
  1. SKYRIZI [Suspect]
     Active Substance: RISANKIZUMAB-RZAA
     Indication: Psoriasis
     Route: 058
     Dates: start: 20200101, end: 2024

REACTIONS (4)
  - Fall [Recovered/Resolved]
  - Head injury [Unknown]
  - Fall [Recovered/Resolved]
  - Fall [Recovering/Resolving]

NARRATIVE: CASE EVENT DATE: 20240101
